FAERS Safety Report 16020846 (Version 3)
Quarter: 2019Q1

REPORT INFORMATION
  Report Type: Spontaneous
  Country: BR (occurrence: BR)
  Receive Date: 20190301
  Receipt Date: 20190323
  Transmission Date: 20190418
  Serious: Yes (Life-Threatening, Hospitalization, Other)
  Sender: FDA-Public Use
  Company Number: BR-AMGEN-BRASP2019032186

PATIENT
  Age: 74 Year
  Sex: Female

DRUGS (1)
  1. KYPROLIS [Suspect]
     Active Substance: CARFILZOMIB
     Indication: PLASMA CELL MYELOMA
     Dosage: 30 MILLIGRAM/SQ. METER
     Route: 042
     Dates: start: 20190110

REACTIONS (6)
  - Hypertension [Recovered/Resolved]
  - Acute pulmonary oedema [Recovered/Resolved]
  - Pulmonary congestion [Recovered/Resolved]
  - Orthopnoea [Recovered/Resolved]
  - Dyspnoea [Recovered/Resolved]
  - Malaise [Recovered/Resolved]

NARRATIVE: CASE EVENT DATE: 20190111
